FAERS Safety Report 16107623 (Version 1)
Quarter: 2019Q1

REPORT INFORMATION
  Report Type: Spontaneous
  Country: US (occurrence: US)
  Receive Date: 20190322
  Receipt Date: 20190322
  Transmission Date: 20190418
  Serious: Yes (Other)
  Sender: FDA-Public Use
  Company Number: US-GLAXOSMITHKLINE-US2019051596

PATIENT
  Sex: Female

DRUGS (1)
  1. BREO ELLIPTA [Suspect]
     Active Substance: FLUTICASONE FUROATE\VILANTEROL TRIFENATATE
     Indication: PNEUMONIA
     Dosage: 1 PUFF(S), UNK
     Route: 055

REACTIONS (5)
  - Wrong technique in device usage process [Recovered/Resolved]
  - Product prescribing error [Unknown]
  - Product use in unapproved indication [Unknown]
  - Pneumonia [Recovering/Resolving]
  - Product dose omission [Recovered/Resolved]
